FAERS Safety Report 5106891-3 (Version None)
Quarter: 2006Q3

REPORT INFORMATION
  Report Type: 
  Country: None (occurrence: None)
  Receive Date: 20060913
  Receipt Date: 20060901
  Transmission Date: 20061208
  Serious: Yes (Other)
  Sender: FDA-Public Use
  Company Number: HQWYE328105SEP06

PATIENT
  Age: 83 Year
  Sex: Female

DRUGS (3)
  1. ETODOLAC [Suspect]
     Indication: BACK PAIN
     Dosage: ORAL
     Route: 048
     Dates: start: 20040501, end: 20040501
  2. RISEDRONATE (RISEDRONATE) [Concomitant]
  3. CALCITONIN SALMON [Concomitant]

REACTIONS (3)
  - DRUG HYPERSENSITIVITY [None]
  - LIVER FUNCTION TEST ABNORMAL [None]
  - WHITE BLOOD CELL COUNT INCREASED [None]
